FAERS Safety Report 6410767-9 (Version None)
Quarter: 2009Q4

REPORT INFORMATION
  Report Type: 
  Country: None (occurrence: None)
  Receive Date: 20091020
  Receipt Date: 20091020
  Transmission Date: 20100525
  Serious: Yes (Other)
  Sender: FDA-Public Use
  Company Number: None

PATIENT
  Age: 31 Year
  Sex: Female
  Weight: 48.0813 kg

DRUGS (2)
  1. OSELTAMIVIR PHOSPHATE 75 MG ROCHE [Suspect]
     Indication: EXPOSURE TO COMMUNICABLE DISEASE
     Dosage: 75 MG CAPSULE 2 X DAY PO
     Route: 048
     Dates: start: 20091014, end: 20091014
  2. OSELTAMIVIR PHOSPHATE 75 MG ROCHE [Suspect]
     Indication: H1N1 INFLUENZA
     Dosage: 75 MG CAPSULE 2 X DAY PO
     Route: 048
     Dates: start: 20091014, end: 20091014

REACTIONS (9)
  - CONFUSIONAL STATE [None]
  - DIZZINESS [None]
  - DYSPHAGIA [None]
  - FATIGUE [None]
  - NAUSEA [None]
  - NECK PAIN [None]
  - RASH [None]
  - THROAT TIGHTNESS [None]
  - TONGUE DISCOLOURATION [None]
